FAERS Safety Report 8289489-8 (Version None)
Quarter: 2012Q2

REPORT INFORMATION
  Report Type: 
  Country: None (occurrence: None)
  Receive Date: 20120417
  Receipt Date: 20120409
  Transmission Date: 20120825
  Serious: Yes (Other)
  Sender: FDA-Public Use
  Company Number: CN-ASTELLAS-2012US003598

PATIENT
  Age: 70 Year

DRUGS (2)
  1. TARCEVA [Suspect]
     Indication: LUNG NEOPLASM MALIGNANT
     Dosage: 150 MG, UID/QD
     Route: 048
  2. UNKNOWN DRUG [Concomitant]
     Indication: FLUID REPLACEMENT
     Dosage: UNK
     Route: 065

REACTIONS (1)
  - ECCHYMOSIS [None]
